FAERS Safety Report 16372522 (Version 1)
Quarter: 2019Q2

REPORT INFORMATION
  Report Type: Spontaneous
  Country: FR (occurrence: FR)
  Receive Date: 20190530
  Receipt Date: 20190530
  Transmission Date: 20190711
  Serious: Yes (Other)
  Sender: FDA-Public Use
  Company Number: FR-TOLMAR, INC.-TOLG20192262

PATIENT
  Age: 77 Year
  Sex: Female
  Weight: 80 kg

DRUGS (7)
  1. GENTAMYCIN [Concomitant]
     Active Substance: GENTAMICIN
     Indication: ENCEPHALITIS
     Dosage: 240 MG
     Route: 065
     Dates: start: 20180509, end: 20180509
  2. ACYCLOVIR. [Suspect]
     Active Substance: ACYCLOVIR
     Dosage: 10 MG/KG (750 MG)
     Route: 042
     Dates: start: 20180511, end: 20180512
  3. METFORMIN [Concomitant]
     Active Substance: METFORMIN HYDROCHLORIDE
     Indication: PRODUCT USED FOR UNKNOWN INDICATION
     Dosage: UNKNOWN
     Route: 065
     Dates: end: 20180509
  4. AMOXICILLIN. [Concomitant]
     Active Substance: AMOXICILLIN
     Indication: PYREXIA
  5. ACYCLOVIR. [Suspect]
     Active Substance: ACYCLOVIR
     Indication: HERPES ZOSTER MENINGOENCEPHALITIS
     Dosage: 15 MG/KG (1.2 G)
     Route: 042
     Dates: start: 20180512, end: 20180513
  6. AMOXICILLIN. [Concomitant]
     Active Substance: AMOXICILLIN
     Indication: ENCEPHALITIS
     Dosage: 12 G
     Route: 065
     Dates: start: 20180509, end: 20180511
  7. GENTAMYCIN [Concomitant]
     Active Substance: GENTAMICIN
     Indication: PYREXIA

REACTIONS (3)
  - Confusional state [Recovered/Resolved]
  - Acute kidney injury [Recovered/Resolved]
  - Agitation [Recovered/Resolved]

NARRATIVE: CASE EVENT DATE: 201805
